FAERS Safety Report 4701570-6 (Version None)
Quarter: 2005Q2

REPORT INFORMATION
  Report Type: 
  Country: None (occurrence: None)
  Receive Date: 20050628
  Receipt Date: 20050615
  Transmission Date: 20051028
  Serious: Yes (Other)
  Sender: FDA-Public Use
  Company Number: 2005AP03311

PATIENT
  Age: 79 Year
  Weight: 60 kg

DRUGS (1)
  1. MEROPENEM [Suspect]

REACTIONS (1)
  - INTERSTITIAL LUNG DISEASE [None]
